FAERS Safety Report 6405960-5 (Version None)
Quarter: 2009Q4

REPORT INFORMATION
  Report Type: 
  Country: None (occurrence: None)
  Receive Date: 20091016
  Receipt Date: 20091016
  Transmission Date: 20100525
  Serious: No
  Sender: FDA-Public Use
  Company Number: None

PATIENT
  Age: 61 Year
  Sex: Male
  Weight: 86.3 kg

DRUGS (2)
  1. HYDROXYZINE [Suspect]
     Indication: ANXIETY
     Dosage: 25 MG QID PO
     Route: 048
     Dates: start: 20090929, end: 20091013
  2. OLANZAPINE [Suspect]
     Indication: SCHIZOPHRENIA
     Dosage: 5 MG BID PO
     Route: 048
     Dates: start: 20090929, end: 20091013

REACTIONS (1)
  - MENTAL STATUS CHANGES [None]
